FAERS Safety Report 9439285 (Version 1)
Quarter: 2013Q3

REPORT INFORMATION
  Report Type: Report from Study
  Country: CA (occurrence: CA)
  Receive Date: 20130804
  Receipt Date: 20130804
  Transmission Date: 20140515
  Serious: Yes (Other)
  Sender: FDA-Public Use
  Company Number: CA-ROCHE-1254883

PATIENT
  Sex: Male
  Weight: 68.9 kg

DRUGS (3)
  1. AVASTIN [Suspect]
     Indication: COLON CANCER METASTATIC
     Route: 042
     Dates: start: 20130715, end: 201307
  2. XELODA [Suspect]
     Indication: PRODUCT USED FOR UNKNOWN INDICATION
     Dosage: 14 DAYS PER CYCLE
     Route: 048
     Dates: start: 20130611, end: 20130703
  3. XELODA [Suspect]
     Route: 048
     Dates: start: 20130703

REACTIONS (3)
  - Eye discharge [Unknown]
  - Neuropathy peripheral [Unknown]
  - Gait disturbance [Unknown]
